FAERS Safety Report 4956449-1 (Version None)
Quarter: 2006Q1

REPORT INFORMATION
  Report Type: 
  Country: None (occurrence: None)
  Receive Date: 20060328
  Receipt Date: 20060328
  Transmission Date: 20060701
  Serious: Yes (Hospitalization)
  Sender: FDA-Public Use
  Company Number: None

PATIENT
  Age: 18 Year
  Sex: Female
  Weight: 107.0489 kg

DRUGS (3)
  1. YASMIN [Suspect]
     Indication: ORAL CONTRACEPTION
     Dosage: ONE PO DAILY X PAST YR
     Route: 048
  2. ADDERALL 10 [Concomitant]
  3. LEXAPRO [Concomitant]

REACTIONS (6)
  - DILATATION VENTRICULAR [None]
  - DYSPNOEA EXERTIONAL [None]
  - OXYGEN SATURATION DECREASED [None]
  - PLEURITIC PAIN [None]
  - PULMONARY EMBOLISM [None]
  - SINUS TACHYCARDIA [None]
